FAERS Safety Report 5793139-X (Version None)
Quarter: 2008Q2

REPORT INFORMATION
  Report Type: 
  Country: None (occurrence: None)
  Receive Date: 20080627
  Receipt Date: 20080416
  Transmission Date: 20081010
  Serious: No
  Sender: FDA-Public Use
  Company Number: A0723170A

PATIENT
  Age: 57 Year
  Sex: Male

DRUGS (4)
  1. FLOVENT [Suspect]
     Indication: ASTHMA
     Dosage: 1PUFF TWICE PER DAY
     Route: 055
  2. DILTIAZEM HCL [Concomitant]
  3. TRIAMTERENE [Concomitant]
  4. ALBUTEROL [Concomitant]

REACTIONS (2)
  - DYSPNOEA [None]
  - PHARMACEUTICAL PRODUCT COMPLAINT [None]
